FAERS Safety Report 9291117 (Version 1)
Quarter: 2013Q2

REPORT INFORMATION
  Report Type: Other
  Country: GB (occurrence: GB)
  Receive Date: 20130515
  Receipt Date: 20130515
  Transmission Date: 20140414
  Serious: Yes (Other)
  Sender: FDA-Public Use
  Company Number: GB-WATSON-2013-08106

PATIENT
  Age: 44 Year
  Sex: Female
  Weight: 78 kg

DRUGS (2)
  1. LISINOPRIL (UNKNOWN) [Suspect]
     Indication: HYPERTENSION
     Dosage: 2.5MG
     Route: 048
     Dates: start: 20130121, end: 20130128
  2. DEXAMFETAMINE [Concomitant]
     Indication: NARCOLEPSY
     Dosage: 5 MG, BID
     Route: 048

REACTIONS (2)
  - Blister [Recovered/Resolved]
  - Stevens-Johnson syndrome [Recovered/Resolved]
